FAERS Safety Report 7495078-5 (Version None)
Quarter: 2011Q2

REPORT INFORMATION
  Report Type: 
  Country: None (occurrence: None)
  Receive Date: 20110520
  Receipt Date: 20110510
  Transmission Date: 20111010
  Serious: Yes (Hospitalization)
  Sender: FDA-Public Use
  Company Number: US-BAYER-2011-039984

PATIENT
  Age: 65 Year
  Sex: Male

DRUGS (5)
  1. ZOSYN [Suspect]
     Indication: PNEUMONIA
     Dosage: UNK
     Route: 042
     Dates: start: 20110321, end: 20110324
  2. INTERMUNE STUDY MEDICATION [Suspect]
     Dosage: UNK
     Dates: start: 20081008
  3. PROTONIX [Concomitant]
  4. ADVAIR DISKUS 100/50 [Concomitant]
  5. AVELOX [Suspect]
     Indication: PNEUMONIA
     Dosage: UNK
     Route: 048
     Dates: start: 20110321, end: 20110324

REACTIONS (2)
  - PULMONARY FUNCTION TEST DECREASED [None]
  - IDIOPATHIC PULMONARY FIBROSIS [None]
